FAERS Safety Report 4531070-8 (Version None)
Quarter: 2004Q4

REPORT INFORMATION
  Report Type: 
  Country: None (occurrence: None)
  Receive Date: 20041215
  Receipt Date: 20041202
  Transmission Date: 20050328
  Serious: Yes (Hospitalization)
  Sender: FDA-Public Use
  Company Number: 2004101539

PATIENT
  Age: 81 Year
  Sex: Female
  Weight: 60 kg

DRUGS (2)
  1. CELEBREX [Suspect]
     Indication: LOCALISED OSTEOARTHRITIS
  2. ANALGESICS (ANALGESICS) [Concomitant]

REACTIONS (3)
  - PAIN [None]
  - THERAPY NON-RESPONDER [None]
  - X-RAY ABNORMAL [None]
